FAERS Safety Report 16658504 (Version 1)
Quarter: 2019Q3

REPORT INFORMATION
  Report Type: Spontaneous
  Country: IT (occurrence: IT)
  Receive Date: 20190801
  Receipt Date: 20190801
  Transmission Date: 20191004
  Serious: Yes (Hospitalization)
  Sender: FDA-Public Use
  Company Number: IT-LUNDBECK-DKLU3001870

PATIENT
  Age: 4 Year
  Sex: Male

DRUGS (2)
  1. FRISIUM [Suspect]
     Active Substance: CLOBAZAM
     Indication: EPILEPSY
     Route: 048
     Dates: start: 20190706, end: 20190709
  2. VALPROATE SODIUM/VALPROIC ACID [Suspect]
     Active Substance: VALPROIC ACID
     Indication: EPILEPSY
     Route: 048
     Dates: start: 20180901, end: 20190709

REACTIONS (2)
  - Seizure [Unknown]
  - Drug ineffective [Unknown]
